FAERS Safety Report 6067633-0 (Version None)
Quarter: 2009Q1

REPORT INFORMATION
  Report Type: 
  Country: None (occurrence: None)
  Receive Date: 20090205
  Receipt Date: 20090129
  Transmission Date: 20090719
  Serious: No
  Sender: FDA-Public Use
  Company Number: US-B.I. PHARMACEUTICALS,INC./RIDGEFIELD-2009-BP-01275BP

PATIENT
  Sex: Male

DRUGS (4)
  1. SPIRIVA [Suspect]
     Indication: CHRONIC OBSTRUCTIVE PULMONARY DISEASE
     Dosage: 18MCG
     Route: 055
     Dates: start: 20081001, end: 20090122
  2. TOPROL-XL [Concomitant]
     Indication: HYPERTENSION
     Dosage: 25MG
     Route: 048
     Dates: start: 20020101
  3. WELLBUTRIN [Concomitant]
     Indication: EX-TOBACCO USER
     Dosage: 300MG
     Route: 048
     Dates: start: 20040101
  4. MULTI-VITAMIN [Concomitant]
     Indication: ROUTINE HEALTH MAINTENANCE
     Route: 048

REACTIONS (4)
  - CONSTIPATION [None]
  - DRY MOUTH [None]
  - DRY THROAT [None]
  - MIDDLE INSOMNIA [None]
